FAERS Safety Report 21504774 (Version 2)
Quarter: 2023Q1

REPORT INFORMATION
  Report Type: Spontaneous
  Country: CA (occurrence: CA)
  Receive Date: 20221025
  Receipt Date: 20230323
  Transmission Date: 20230418
  Serious: Yes (Other)
  Sender: FDA-Public Use
  Company Number: CA-BAUSCH-BL-2022-023941

PATIENT
  Age: 52 Year
  Sex: Female
  Weight: 98 kg

DRUGS (42)
  1. FLUOROURACIL [Suspect]
     Active Substance: FLUOROURACIL
     Indication: Breast cancer stage II
     Route: 065
  2. AFINITOR [Suspect]
     Active Substance: EVEROLIMUS
     Indication: Metastases to liver
     Route: 065
  3. AFINITOR [Suspect]
     Active Substance: EVEROLIMUS
     Indication: Breast cancer metastatic
     Route: 065
  4. AFINITOR [Suspect]
     Active Substance: EVEROLIMUS
     Route: 065
  5. CARBOPLATIN [Suspect]
     Active Substance: CARBOPLATIN
     Indication: Metastases to liver
     Dosage: SOLUTION INTRAVENOUS
     Route: 042
  6. CARBOPLATIN [Suspect]
     Active Substance: CARBOPLATIN
     Indication: Breast cancer metastatic
     Route: 065
  7. CARBOPLATIN [Suspect]
     Active Substance: CARBOPLATIN
     Route: 042
  8. EPIRUBICIN HYDROCHLORIDE [Suspect]
     Active Substance: EPIRUBICIN HYDROCHLORIDE
     Indication: Breast cancer stage II
     Route: 065
  9. EXEMESTANE [Suspect]
     Active Substance: EXEMESTANE
     Indication: Metastases to liver
     Route: 065
  10. EXEMESTANE [Suspect]
     Active Substance: EXEMESTANE
     Indication: Breast cancer metastatic
     Route: 065
  11. EXEMESTANE [Suspect]
     Active Substance: EXEMESTANE
     Route: 065
  12. EXEMESTANE [Suspect]
     Active Substance: EXEMESTANE
     Route: 065
  13. LETROZOLE [Suspect]
     Active Substance: LETROZOLE
     Indication: Metastases to liver
     Route: 065
  14. LETROZOLE [Suspect]
     Active Substance: LETROZOLE
     Indication: Breast cancer metastatic
  15. EPIRUBICIN [Suspect]
     Active Substance: EPIRUBICIN
     Indication: Breast cancer
     Dosage: SOLUTION INTRAVENOUS, PMS-EPIRUBICIN
     Route: 042
  16. CYCLOPHOSPHAMIDE [Suspect]
     Active Substance: CYCLOPHOSPHAMIDE
     Indication: Breast cancer stage II
     Route: 065
  17. TAMOXIFEN CITRATE [Suspect]
     Active Substance: TAMOXIFEN CITRATE
     Indication: Metastases to liver
     Route: 065
  18. TAMOXIFEN CITRATE [Suspect]
     Active Substance: TAMOXIFEN CITRATE
     Indication: Breast cancer stage II
  19. TAMOXIFEN CITRATE [Suspect]
     Active Substance: TAMOXIFEN CITRATE
     Indication: Breast cancer metastatic
  20. TAXOL [Suspect]
     Active Substance: PACLITAXEL
     Indication: Metastases to liver
     Route: 042
  21. TAXOL [Suspect]
     Active Substance: PACLITAXEL
     Indication: Breast cancer metastatic
     Route: 065
  22. TAXOL [Suspect]
     Active Substance: PACLITAXEL
     Dosage: SOLUTION INTRAVENOUS
     Route: 042
  23. TAXOL [Suspect]
     Active Substance: PACLITAXEL
     Route: 065
  24. TAXOTERE [Suspect]
     Active Substance: DOCETAXEL
     Indication: Metastases to liver
     Dosage: SOLUTION INTRAVENOUS
     Route: 065
  25. TAXOTERE [Suspect]
     Active Substance: DOCETAXEL
     Indication: Breast cancer metastatic
     Route: 042
  26. TAXOTERE [Suspect]
     Active Substance: DOCETAXEL
     Route: 065
  27. XELODA [Suspect]
     Active Substance: CAPECITABINE
     Indication: Metastases to liver
     Route: 065
  28. XELODA [Suspect]
     Active Substance: CAPECITABINE
     Indication: Breast cancer metastatic
     Route: 048
  29. XELODA [Suspect]
     Active Substance: CAPECITABINE
     Route: 065
  30. CAPECITABINE [Suspect]
     Active Substance: CAPECITABINE
     Indication: Breast cancer stage II
     Route: 065
  31. CAPECITABINE [Suspect]
     Active Substance: CAPECITABINE
     Indication: Metastases to liver
  32. PACLITAXEL [Suspect]
     Active Substance: PACLITAXEL
     Indication: Metastases to liver
     Route: 065
  33. PACLITAXEL [Suspect]
     Active Substance: PACLITAXEL
     Indication: Breast cancer metastatic
     Dosage: LIQUID?INTRAVENOUS
     Route: 065
  34. PACLITAXEL [Suspect]
     Active Substance: PACLITAXEL
     Indication: Metastases to bone
  35. ACETAMINOPHEN [Concomitant]
     Active Substance: ACETAMINOPHEN
     Indication: Product used for unknown indication
     Route: 048
  36. ACETAMINOPHEN AND CODEINE [Concomitant]
     Active Substance: ACETAMINOPHEN\CODEINE PHOSPHATE
     Indication: Product used for unknown indication
     Dosage: ACETAMINOPHEN/CODEINE PHOSPHATE
     Route: 048
  37. CANNABIDIOL [Concomitant]
     Active Substance: CANNABIDIOL
     Indication: Product used for unknown indication
     Route: 048
  38. HYDROCHLOROTHIAZIDE [Concomitant]
     Active Substance: HYDROCHLOROTHIAZIDE
     Indication: Product used for unknown indication
     Route: 048
  39. HYDROMORPHONE [Concomitant]
     Active Substance: HYDROMORPHONE
     Indication: Product used for unknown indication
     Route: 048
  40. MAGNESIUM [Concomitant]
     Active Substance: MAGNESIUM
     Indication: Product used for unknown indication
     Route: 048
  41. OLMESARTAN MEDOXOMIL [Concomitant]
     Active Substance: OLMESARTAN MEDOXOMIL
     Indication: Product used for unknown indication
     Route: 048
  42. RIVAROXABAN [Concomitant]
     Active Substance: RIVAROXABAN
     Indication: Product used for unknown indication
     Route: 048

REACTIONS (18)
  - Breast cancer metastatic [Unknown]
  - Asthma [Unknown]
  - Chest pain [Unknown]
  - Drug hypersensitivity [Unknown]
  - Heart rate irregular [Unknown]
  - Metastases to bone [Unknown]
  - Metastases to liver [Unknown]
  - Nail disorder [Unknown]
  - Nausea [Unknown]
  - Neoplasm progression [Unknown]
  - Neuropathy peripheral [Unknown]
  - Paraesthesia [Unknown]
  - Device related thrombosis [Unknown]
  - Diarrhoea [Unknown]
  - Rash [Unknown]
  - Vomiting [Unknown]
  - Skin exfoliation [Unknown]
  - Drug ineffective [Unknown]
